FAERS Safety Report 18225271 (Version 4)
Quarter: 2020Q4

REPORT INFORMATION
  Report Type: Spontaneous
  Country: PL (occurrence: PL)
  Receive Date: 20200903
  Receipt Date: 20201020
  Transmission Date: 20210113
  Serious: Yes (Life-Threatening, Hospitalization)
  Sender: FDA-Public Use
  Company Number: PL-TEVA-2020-PL-1821252

PATIENT
  Age: 3 Year
  Sex: Male

DRUGS (4)
  1. IRINOTECAN [Concomitant]
     Active Substance: IRINOTECAN
     Indication: NEUROBLASTOMA
     Route: 065
  2. PLERIXAFOR [Suspect]
     Active Substance: PLERIXAFOR
     Indication: PERIPHERAL BLOOD STEM CELL APHERESIS
     Route: 065
  3. TEMOZOLOMIDE. [Concomitant]
     Active Substance: TEMOZOLOMIDE
     Indication: NEUROBLASTOMA
     Route: 065
  4. FILGRASTIM [Suspect]
     Active Substance: FILGRASTIM
     Indication: PERIPHERAL BLOOD STEM CELL APHERESIS
     Dosage: 5 UG/KG DAILY;
     Route: 065

REACTIONS (16)
  - Hypokinesia [Recovered/Resolved]
  - Haemoptysis [Recovered/Resolved]
  - Electrocardiogram QT prolonged [Recovered/Resolved]
  - Disseminated intravascular coagulation [Recovered/Resolved]
  - Circulatory collapse [Recovered/Resolved]
  - Nausea [Recovered/Resolved]
  - Respiratory tract haemorrhage [Recovered/Resolved]
  - Pulmonary oedema [Recovered/Resolved]
  - Drug ineffective [Unknown]
  - Seizure [Recovered/Resolved]
  - Acute lung injury [Recovered/Resolved]
  - Respiratory failure [Recovered/Resolved]
  - Cardiac arrest [Recovered/Resolved]
  - Nystagmus [Recovered/Resolved]
  - Dyspnoea [Recovered/Resolved]
  - Tachycardia [Recovered/Resolved]
